FAERS Safety Report 6885156-3 (Version None)
Quarter: 2010Q3

REPORT INFORMATION
  Report Type: 
  Country: None (occurrence: None)
  Receive Date: 20100729
  Receipt Date: 20071206
  Transmission Date: 20110219
  Serious: Yes (Other)
  Sender: FDA-Public Use
  Company Number: US-PFIZER INC-2007088576

PATIENT
  Age: 81 Year
  Sex: Female
  Weight: 71.2 kg

DRUGS (2)
  1. CELEBREX [Suspect]
     Indication: PROCEDURAL PAIN
     Route: 048
     Dates: start: 20070921, end: 20070927
  2. VICODIN [Concomitant]

REACTIONS (3)
  - DRUG HYPERSENSITIVITY [None]
  - GASTROINTESTINAL HAEMORRHAGE [None]
  - RECTAL HAEMORRHAGE [None]
